FAERS Safety Report 6491719-X (Version None)
Quarter: 2009Q4

REPORT INFORMATION
  Report Type: 
  Country: None (occurrence: None)
  Receive Date: 20091125
  Receipt Date: 20090504
  Transmission Date: 20100525
  Serious: Yes (Other)
  Sender: FDA-Public Use
  Company Number: 2009BH007982

PATIENT
  Age: 53 Year
  Sex: Male

DRUGS (15)
  1. DIANEAL PD4, ABUM-FLEX CONTAINER [Suspect]
     Indication: PERITONEAL DIALYSIS
     Dosage: EVERY DAY;IP
     Route: 033
     Dates: start: 20080101, end: 20090126
  2. DIANEAL [Suspect]
     Indication: PERITONEAL DIALYSIS
     Dosage: EVERY DAY; IP
     Route: 033
     Dates: start: 20080101, end: 20090326
  3. AMOXICILLIN [Concomitant]
  4. CLONIDINE [Concomitant]
  5. WARFARIN SODIUM [Concomitant]
  6. DETROL [Concomitant]
  7. FORTAZ [Concomitant]
  8. HECTOROL [Concomitant]
  9. LASIX [Concomitant]
  10. LISINOPRIL [Concomitant]
  11. AMLODIPINE [Concomitant]
  12. PHOSLO [Concomitant]
  13. TUMS [Concomitant]
  14. VANCOMYCIN [Concomitant]
  15. COREG [Concomitant]

REACTIONS (1)
  - PERITONITIS BACTERIAL [None]
